FAERS Safety Report 25705656 (Version 1)
Quarter: 2025Q3

REPORT INFORMATION
  Report Type: Spontaneous
  Country: US (occurrence: US)
  Receive Date: 20250820
  Receipt Date: 20250820
  Transmission Date: 20251020
  Serious: Yes (Other)
  Sender: MYLAN
  Company Number: US-MYLANLABS-2025M1069360

PATIENT
  Age: 51 Year
  Sex: Female

DRUGS (16)
  1. PROPRANOLOL [Suspect]
     Active Substance: PROPRANOLOL HYDROCHLORIDE
     Indication: Movement disorder
  2. PROPRANOLOL [Suspect]
     Active Substance: PROPRANOLOL HYDROCHLORIDE
     Route: 065
  3. PROPRANOLOL [Suspect]
     Active Substance: PROPRANOLOL HYDROCHLORIDE
     Route: 065
  4. PROPRANOLOL [Suspect]
     Active Substance: PROPRANOLOL HYDROCHLORIDE
  5. PRIMIDONE [Suspect]
     Active Substance: PRIMIDONE
     Indication: Movement disorder
  6. PRIMIDONE [Suspect]
     Active Substance: PRIMIDONE
     Route: 065
  7. PRIMIDONE [Suspect]
     Active Substance: PRIMIDONE
     Route: 065
  8. PRIMIDONE [Suspect]
     Active Substance: PRIMIDONE
  9. TOPIRAMATE [Suspect]
     Active Substance: TOPIRAMATE
     Indication: Movement disorder
  10. TOPIRAMATE [Suspect]
     Active Substance: TOPIRAMATE
     Route: 065
  11. TOPIRAMATE [Suspect]
     Active Substance: TOPIRAMATE
     Route: 065
  12. TOPIRAMATE [Suspect]
     Active Substance: TOPIRAMATE
  13. CLONAZEPAM [Concomitant]
     Active Substance: CLONAZEPAM
     Indication: Movement disorder
  14. CLONAZEPAM [Concomitant]
     Active Substance: CLONAZEPAM
     Route: 065
  15. CLONAZEPAM [Concomitant]
     Active Substance: CLONAZEPAM
     Route: 065
  16. CLONAZEPAM [Concomitant]
     Active Substance: CLONAZEPAM

REACTIONS (2)
  - Drug ineffective for unapproved indication [Unknown]
  - Off label use [Unknown]
